FAERS Safety Report 6385163-3 (Version None)
Quarter: 2009Q4

REPORT INFORMATION
  Report Type: 
  Country: None (occurrence: None)
  Receive Date: 20091002
  Receipt Date: 20090122
  Transmission Date: 20100525
  Serious: No
  Sender: FDA-Public Use
  Company Number: US-ASTRAZENECA-2004UW03075

PATIENT
  Age: 67 Year
  Sex: Female
  Weight: 113.4 kg

DRUGS (8)
  1. ARIMIDEX [Suspect]
     Indication: BREAST CANCER
     Route: 048
     Dates: start: 20040201, end: 20090119
  2. ARIMIDEX [Suspect]
     Route: 048
     Dates: start: 20090120
  3. LIPITOR [Concomitant]
     Indication: BLOOD CHOLESTEROL
  4. LISINOPRIL [Concomitant]
     Indication: BLOOD PRESSURE
  5. XANAX [Concomitant]
     Indication: ANXIETY
  6. TYLENOL (CAPLET) [Concomitant]
     Indication: MYALGIA
  7. SIMVASTATIN [Concomitant]
     Indication: BLOOD CHOLESTEROL INCREASED
  8. ZANTAC [Concomitant]
     Indication: GASTROINTESTINAL DISORDER

REACTIONS (9)
  - ABDOMINAL DISTENSION [None]
  - ARTHRALGIA [None]
  - BACK PAIN [None]
  - DYSPHONIA [None]
  - HEART RATE IRREGULAR [None]
  - HOT FLUSH [None]
  - HYPOAESTHESIA [None]
  - PAIN [None]
  - PALPITATIONS [None]
